FAERS Safety Report 22631179 (Version 1)
Quarter: 2023Q2

REPORT INFORMATION
  Report Type: Spontaneous
  Country: US (occurrence: US)
  Receive Date: 20230623
  Receipt Date: 20230623
  Transmission Date: 20230721
  Serious: No
  Sender: FDA-Public Use
  Company Number: US-STERISCIENCE B.V.-2023-ST-000066

PATIENT
  Age: 8 Week
  Sex: Male

DRUGS (9)
  1. MIDAZOLAM [Suspect]
     Active Substance: MIDAZOLAM
     Indication: Status epilepticus
     Dosage: SLOWLY TITRATED FROM 0.05 MG/KG/HOUR TO 0.15 MG/KG/HOUR OVER 11 HOURS
     Route: 042
  2. FOSPHENYTOIN [Suspect]
     Active Substance: FOSPHENYTOIN
     Indication: Status epilepticus
     Dosage: LOAD OF 20 MILLIGRAM/KILOGRAM
     Route: 065
  3. FOSPHENYTOIN [Suspect]
     Active Substance: FOSPHENYTOIN
     Dosage: LOADING DOSE OF 20 MILLIGRAM/KILOGRAM
     Route: 065
  4. LEVETIRACETAM [Suspect]
     Active Substance: LEVETIRACETAM
     Indication: Status epilepticus
     Dosage: 40 MG/KG/DAY DIVIDED INTO TWO TIMES PER DAY
     Route: 065
  5. LEVETIRACETAM [Suspect]
     Active Substance: LEVETIRACETAM
     Dosage: 30 MILLIGRAM/KILOGRAM
     Route: 065
  6. PHENOBARBITAL [Suspect]
     Active Substance: PHENOBARBITAL
     Indication: Status epilepticus
     Dosage: 5 MG/KG/DAY DIVIDED INTO TWO TIMES PER DAY
     Route: 065
  7. PHENOBARBITAL [Suspect]
     Active Substance: PHENOBARBITAL
     Dosage: 20 MILLIGRAM/KILOGRAM
     Route: 065
  8. LACOSAMIDE [Concomitant]
     Active Substance: LACOSAMIDE
     Indication: Status epilepticus
     Dosage: LOADING DOSE OF 20 MILLIGRAM (~4 MG/KG)
     Route: 042
  9. LACOSAMIDE [Concomitant]
     Active Substance: LACOSAMIDE
     Dosage: ANOTHER LOAD OF 20 MILLIGRAM
     Route: 065

REACTIONS (1)
  - Drug ineffective for unapproved indication [Unknown]
